FAERS Safety Report 16692144 (Version 1)
Quarter: 2019Q4

REPORT INFORMATION
  Report Type: Spontaneous
  Country: US (occurrence: US)
  Receive Date: 20190811
  Receipt Date: 20190811
  Transmission Date: 20200122
  Serious: Yes (Life-Threatening, Disabling, Congenital Anomaly)
  Sender: FDA-Public Use
  Company Number: None

PATIENT
  Sex: Female
  Weight: 54.43 kg

DRUGS (1)
  1. MORPHINE FAST ACTING- | ONLY RECIEVE LESS THAN HALF [Suspect]
     Active Substance: MORPHINE
     Indication: PAIN
     Dosage: ?          QUANTITY:90 ;?

REACTIONS (1)
  - Cardiac valve disease [None]

NARRATIVE: CASE EVENT DATE: 20170101
